FAERS Safety Report 4452531-6 (Version None)
Quarter: 2004Q3

REPORT INFORMATION
  Report Type: 
  Country: None (occurrence: None)
  Receive Date: 20040813
  Receipt Date: 20040505
  Transmission Date: 20050211
  Serious: No
  Sender: FDA-Public Use
  Company Number: S04-USA-03411-01

PATIENT
  Age: 92 Year
  Sex: Female

DRUGS (8)
  1. NAMENDA [Suspect]
     Indication: DEMENTIA
     Dosage: 15 MG QD PO
     Route: 048
     Dates: start: 20040428
  2. NAMENDA [Suspect]
     Indication: DEMENTIA
     Dosage: 5 MG QD PO
     Route: 048
     Dates: start: 20040414, end: 20040420
  3. NAMENDA [Suspect]
     Indication: DEMENTIA
     Dosage: 10 MG QD PO
     Route: 048
     Dates: start: 20040421, end: 20040427
  4. FOSAMAX [Concomitant]
  5. PROZAC [Concomitant]
  6. ARICEPT [Concomitant]
  7. PROTONIX [Concomitant]
  8. BLOOD PRESSURE MEDICATION [Concomitant]

REACTIONS (1)
  - MUSCLE SPASMS [None]
